FAERS Safety Report 5380335-9 (Version None)
Quarter: 2007Q3

REPORT INFORMATION
  Report Type: 
  Country: None (occurrence: None)
  Receive Date: 20070706
  Receipt Date: 20070601
  Transmission Date: 20080115
  Serious: No
  Sender: FDA-Public Use
  Company Number: A0651952A

PATIENT
  Age: 63 Year
  Sex: Female
  Weight: 56.8 kg

DRUGS (3)
  1. TYKERB [Suspect]
     Dosage: 1250MG PER DAY
     Dates: start: 20070401, end: 20070512
  2. XELODA [Concomitant]
     Indication: BREAST CANCER
     Dosage: 1500MG TWICE PER DAY
     Route: 048
     Dates: start: 20070130, end: 20070512
  3. ADVAIR DISKUS 100/50 [Concomitant]

REACTIONS (4)
  - DIARRHOEA [None]
  - NAIL DISORDER [None]
  - NAIL INFECTION [None]
  - ONYCHALGIA [None]
